FAERS Safety Report 17728775 (Version 1)
Quarter: 2020Q2

REPORT INFORMATION
  Report Type: Spontaneous
  Country: US (occurrence: US)
  Receive Date: 20200430
  Receipt Date: 20200430
  Transmission Date: 20200714
  Serious: No
  Sender: FDA-Public Use
  Company Number: US-ABBVIE-19K-163-2834172-00

PATIENT
  Sex: Female

DRUGS (1)
  1. CREON [Suspect]
     Active Substance: PANCRELIPASE AMYLASE\PANCRELIPASE LIPASE\PANCRELIPASE PROTEASE
     Indication: PRODUCT USED FOR UNKNOWN INDICATION
     Dosage: NORMAL DOSE 3 WITH MEALS AND 2
     Route: 048

REACTIONS (5)
  - Abdominal pain [Unknown]
  - Gastric pH decreased [Unknown]
  - Mobility decreased [Unknown]
  - Drug ineffective [Unknown]
  - Abdominal distension [Unknown]
